FAERS Safety Report 23239454 (Version 2)
Quarter: 2024Q1

REPORT INFORMATION
  Report Type: Spontaneous
  Country: US (occurrence: None)
  Receive Date: 20231129
  Receipt Date: 20240103
  Transmission Date: 20240410
  Serious: No
  Sender: FDA-Public Use
  Company Number: 2023A258405

PATIENT
  Age: 26466 Day
  Sex: Female

DRUGS (3)
  1. BYDUREON BCISE [Suspect]
     Active Substance: EXENATIDE
  2. BYDUREON [Concomitant]
     Active Substance: EXENATIDE
  3. BYETTA [Concomitant]
     Active Substance: EXENATIDE

REACTIONS (7)
  - Injection site haemorrhage [Unknown]
  - Drug dose omission by device [Unknown]
  - Extra dose administered [Unknown]
  - Incorrect dose administered by device [Unknown]
  - Device leakage [Unknown]
  - Device malfunction [Unknown]
  - Device physical property issue [Unknown]

NARRATIVE: CASE EVENT DATE: 20231104
